FAERS Safety Report 12898942 (Version 10)
Quarter: 2017Q2

REPORT INFORMATION
  Report Type: Spontaneous
  Country: US (occurrence: US)
  Receive Date: 20161101
  Receipt Date: 20170428
  Transmission Date: 20170830
  Serious: Yes (Other)
  Sender: FDA-Public Use
  Company Number: PHEH2016US028368

PATIENT
  Sex: Female
  Weight: 68.27 kg

DRUGS (3)
  1. ZOFRAN [Suspect]
     Active Substance: ONDANSETRON HYDROCHLORIDE
     Indication: VOMITING IN PREGNANCY
     Route: 065
  2. ONDANSETRONE DR. REDDY^S [Suspect]
     Active Substance: ONDANSETRON HYDROCHLORIDE
     Indication: VOMITING IN PREGNANCY
     Route: 065
     Dates: start: 20140714, end: 20140724
  3. ONDANSETRON. [Suspect]
     Active Substance: ONDANSETRON
     Indication: VOMITING IN PREGNANCY
     Route: 065
     Dates: start: 20140722, end: 20141223

REACTIONS (5)
  - Premature delivery [Unknown]
  - Maternal exposure during pregnancy [Unknown]
  - Depression [Unknown]
  - Product use in unapproved indication [Unknown]
  - Injury [Unknown]
